FAERS Safety Report 24875731 (Version 6)
Quarter: 2025Q4

REPORT INFORMATION
  Report Type: Spontaneous
  Country: CN (occurrence: CN)
  Receive Date: 20250122
  Receipt Date: 20251125
  Transmission Date: 20260117
  Serious: Yes (Hospitalization)
  Sender: JIANGSU HENGRUI
  Company Number: CN-JIANGSU HENGRUI PHARMACEUTICALS CO., LTD.-H2025001200363

PATIENT
  Age: 34 Year

DRUGS (34)
  1. PACLITAXEL [Suspect]
     Active Substance: PACLITAXEL
     Indication: Breast cancer stage IV
     Dosage: 171 MG, Q4W, C1D1
  2. PACLITAXEL [Suspect]
     Active Substance: PACLITAXEL
     Dosage: 171 MG, Q4W, C1D8
  3. PACLITAXEL [Suspect]
     Active Substance: PACLITAXEL
     Dosage: 171 MG, Q4W, C1D15
  4. PACLITAXEL [Suspect]
     Active Substance: PACLITAXEL
     Dosage: 171 MG, Q4W, C2D1
  5. PACLITAXEL [Suspect]
     Active Substance: PACLITAXEL
     Dosage: 171 MG, Q4W, C2D8
  6. PACLITAXEL [Suspect]
     Active Substance: PACLITAXEL
     Dosage: 171 MG, Q4W, C2D15
  7. PACLITAXEL [Suspect]
     Active Substance: PACLITAXEL
     Dosage: 171 MG, Q4W
  8. PACLITAXEL [Suspect]
     Active Substance: PACLITAXEL
     Dosage: 171 MG, Q4W
  9. PACLITAXEL [Suspect]
     Active Substance: PACLITAXEL
     Dosage: 171 MG, Q4W
  10. PACLITAXEL [Suspect]
     Active Substance: PACLITAXEL
     Dosage: 171 MG, Q4W
  11. PACLITAXEL [Suspect]
     Active Substance: PACLITAXEL
     Dosage: 171 MG, Q4W
  12. PACLITAXEL [Suspect]
     Active Substance: PACLITAXEL
     Dosage: 171 MG, Q4W
  13. PACLITAXEL [Suspect]
     Active Substance: PACLITAXEL
     Dosage: 128 MG, Q4W
  14. PACLITAXEL [Suspect]
     Active Substance: PACLITAXEL
     Dosage: 128 MG, Q4W
  15. PACLITAXEL [Suspect]
     Active Substance: PACLITAXEL
     Dosage: 128 MG, Q4W
  16. PACLITAXEL [Suspect]
     Active Substance: PACLITAXEL
     Dosage: 128 MG, Q4W
  17. PACLITAXEL [Suspect]
     Active Substance: PACLITAXEL
     Dosage: 128 MG, Q4W
  18. PACLITAXEL [Suspect]
     Active Substance: PACLITAXEL
     Dosage: 128 MG, Q4W
  19. PACLITAXEL [Suspect]
     Active Substance: PACLITAXEL
     Dosage: 128 MG, Q4W
  20. PACLITAXEL [Suspect]
     Active Substance: PACLITAXEL
     Dosage: 128 MG, Q4W
  21. PACLITAXEL [Suspect]
     Active Substance: PACLITAXEL
     Dosage: 128 MG, Q4W
  22. PACLITAXEL [Suspect]
     Active Substance: PACLITAXEL
     Dosage: 128 MG, Q4W
  23. PACLITAXEL [Suspect]
     Active Substance: PACLITAXEL
     Dosage: 128 MG, Q4W
  24. PACLITAXEL [Suspect]
     Active Substance: PACLITAXEL
     Dosage: 128 MG, Q4W
  25. PACLITAXEL [Suspect]
     Active Substance: PACLITAXEL
     Dosage: 128 MG, Q4W
  26. PACLITAXEL [Suspect]
     Active Substance: PACLITAXEL
     Dosage: 128 MG, Q4W
  27. PACLITAXEL [Suspect]
     Active Substance: PACLITAXEL
     Dosage: 128 MG, Q4W
  28. PACLITAXEL [Suspect]
     Active Substance: PACLITAXEL
     Dosage: 128 MG, Q4W
  29. PACLITAXEL [Suspect]
     Active Substance: PACLITAXEL
     Dosage: 128 MG, Q4W
  30. PACLITAXEL [Suspect]
     Active Substance: PACLITAXEL
     Dosage: 128 MG, Q4W
  31. PACLITAXEL [Suspect]
     Active Substance: PACLITAXEL
     Dosage: 128 MG, Q4W
  32. PACLITAXEL [Suspect]
     Active Substance: PACLITAXEL
     Dosage: 128 MG, Q4W
  33. PACLITAXEL [Suspect]
     Active Substance: PACLITAXEL
     Dosage: 128 MG, Q4W
  34. PALONOSETRON HYDROCHLORIDE [Concomitant]
     Active Substance: PALONOSETRON HYDROCHLORIDE
     Indication: Prophylaxis
     Dosage: 0.25 MG, ST

REACTIONS (1)
  - Urinary tract infection [Recovered/Resolved]
